FAERS Safety Report 16609663 (Version 1)
Quarter: 2019Q3

REPORT INFORMATION
  Report Type: Spontaneous
  Country: US (occurrence: US)
  Receive Date: 20190607
  Receipt Date: 20190607
  Transmission Date: 20191004
  Serious: Yes (Hospitalization)
  Sender: FDA-Public Use
  Company Number: None

PATIENT
  Age: 66 Year
  Sex: Female

DRUGS (1)
  1. PROLIA [Suspect]
     Active Substance: DENOSUMAB
     Indication: OSTEOPOROSIS
     Dosage: ?          OTHER FREQUENCY: Q 6 MONTHS;?
     Route: 058

REACTIONS (4)
  - Impaired healing [None]
  - Condition aggravated [None]
  - Foot fracture [None]
  - Osteoporosis [None]

NARRATIVE: CASE EVENT DATE: 20190422
